FAERS Safety Report 9725294 (Version 1)
Quarter: 2013Q4

REPORT INFORMATION
  Report Type: Spontaneous
  Country: BR (occurrence: BR)
  Receive Date: 20131203
  Receipt Date: 20131203
  Transmission Date: 20140711
  Serious: Yes (Other)
  Sender: FDA-Public Use
  Company Number: BR-ACCORD-020490

PATIENT
  Age: 74 Year
  Sex: Female
  Weight: 59 kg

DRUGS (10)
  1. DEXAMETHASONE [Concomitant]
     Route: 048
     Dates: start: 20130516, end: 20130722
  2. METOCLOPRAMIDE [Concomitant]
     Route: 048
     Dates: start: 20130514, end: 20130604
  3. OMEPRAZOLE [Concomitant]
     Route: 048
     Dates: start: 20130514, end: 20130614
  4. RANITIDINE [Concomitant]
     Route: 042
     Dates: start: 20130517, end: 20130719
  5. ONDANSETRON [Concomitant]
     Route: 048
     Dates: start: 20130518, end: 20130722
  6. PACLITAXEL [Suspect]
     Indication: CHEMOTHERAPY
     Route: 042
     Dates: start: 20130517, end: 20130719
  7. ONDANSETRON [Concomitant]
     Route: 042
     Dates: start: 20130517, end: 20130719
  8. DEXAMETHASONE [Concomitant]
     Route: 042
     Dates: start: 20130517, end: 20130719
  9. CARBOPLATIN [Concomitant]
     Route: 042
     Dates: start: 20130517, end: 20130719
  10. DIPHENHYDRAMINE [Concomitant]
     Route: 042
     Dates: start: 20130517, end: 20130719

REACTIONS (2)
  - Respiratory distress [Recovered/Resolved]
  - Back pain [Recovered/Resolved]
